FAERS Safety Report 16231211 (Version 3)
Quarter: 2019Q2

REPORT INFORMATION
  Report Type: Spontaneous
  Country: CA (occurrence: CA)
  Receive Date: 20190424
  Receipt Date: 20190523
  Transmission Date: 20190711
  Serious: Yes (Hospitalization)
  Sender: FDA-Public Use
  Company Number: CA-UNITED THERAPEUTICS-UNT-2019-004463

PATIENT
  Age: 63 Year
  Sex: Female

DRUGS (1)
  1. REMODULIN [Suspect]
     Active Substance: TREPROSTINIL
     Indication: PULMONARY ARTERIAL HYPERTENSION
     Dosage: UNK, CONTINUING
     Route: 058
     Dates: start: 20190123

REACTIONS (20)
  - Orthostatic intolerance [Unknown]
  - Infusion site erythema [Recovering/Resolving]
  - Nausea [Not Recovered/Not Resolved]
  - Headache [Not Recovered/Not Resolved]
  - Infusion site swelling [Recovered/Resolved]
  - Infusion site pain [Recovering/Resolving]
  - Alopecia [Unknown]
  - Hypoxia [Unknown]
  - Gait inability [Recovered/Resolved]
  - Malaise [Recovering/Resolving]
  - Oxygen saturation decreased [Recovered/Resolved]
  - Diarrhoea [Not Recovered/Not Resolved]
  - Dizziness [Recovered/Resolved]
  - Pain [Not Recovered/Not Resolved]
  - Feeling of body temperature change [Not Recovered/Not Resolved]
  - Presyncope [Unknown]
  - Blood pressure decreased [Recovering/Resolving]
  - Fatigue [Not Recovered/Not Resolved]
  - Insomnia [Unknown]
  - Dyspnoea [Recovered/Resolved]

NARRATIVE: CASE EVENT DATE: 20190310
